FAERS Safety Report 23336845 (Version 1)
Quarter: 2023Q4

REPORT INFORMATION
  Report Type: Spontaneous
  Country: US (occurrence: US)
  Receive Date: 20231226
  Receipt Date: 20231226
  Transmission Date: 20240110
  Serious: Yes (Other)
  Sender: FDA-Public Use
  Company Number: US-JNJFOC-20231236167

PATIENT
  Sex: Male

DRUGS (5)
  1. DARZALEX FASPRO [Suspect]
     Active Substance: DARATUMUMAB\HYALURONIDASE-FIHJ
     Indication: Plasma cell myeloma
     Route: 058
  2. REVLIMID [Suspect]
     Active Substance: LENALIDOMIDE
     Indication: Plasma cell myeloma
     Route: 065
  3. REVLIMID [Suspect]
     Active Substance: LENALIDOMIDE
     Route: 065
  4. MONTELUKAST [Concomitant]
     Active Substance: MONTELUKAST SODIUM
     Indication: Product used for unknown indication
  5. KYPROLIS [Concomitant]
     Active Substance: CARFILZOMIB
     Route: 041

REACTIONS (16)
  - Neuropathy peripheral [Unknown]
  - Multiple fractures [Unknown]
  - Muscle rupture [Unknown]
  - Plasma cell myeloma [Unknown]
  - Chills [Unknown]
  - Osteoporosis [Unknown]
  - Palpitations [Unknown]
  - COVID-19 [Unknown]
  - Gait disturbance [Unknown]
  - Spinal pain [Unknown]
  - Chest pain [Unknown]
  - Hypersensitivity [Unknown]
  - Injection site pain [Unknown]
  - Oropharyngeal pain [Unknown]
  - Dyspnoea [Unknown]
  - Nerve compression [Unknown]
